FAERS Safety Report 7770614-X (Version None)
Quarter: 2011Q3

REPORT INFORMATION
  Report Type: 
  Country: None (occurrence: None)
  Receive Date: 20110922
  Receipt Date: 20110907
  Transmission Date: 20111222
  Serious: Yes (Other)
  Sender: FDA-Public Use
  Company Number: PHHY2010MX52992

PATIENT
  Age: 64 Year
  Sex: Female

DRUGS (18)
  1. HESPERIDIN [Concomitant]
  2. DIOVAN HCT [Suspect]
     Indication: HYPERTENSION
     Dosage: 1 TABLET (160/12.5 MG ) PER DAY
     Dates: start: 20100401
  3. DIOVAN HCT [Suspect]
     Dosage: HALF TABLET 160/12.5 MG PER DAY
     Dates: start: 20110301
  4. CRESTOR [Concomitant]
  5. BROQUIXOL [Concomitant]
  6. DIOSMINE [Concomitant]
  7. DIOVAN [Concomitant]
     Dosage: 80 MG
  8. ACETAMINOPHEN [Concomitant]
  9. TENORMIN [Concomitant]
     Dosage: HALF TABLET PER DAY
  10. CONTROLIP [Concomitant]
  11. ASPIRIN [Concomitant]
  12. LEXOTAN [Concomitant]
  13. TENORMIN [Concomitant]
  14. EZETIMIBE [Concomitant]
  15. CLOPIDOGREL BISULFATE [Concomitant]
  16. EVISTA [Concomitant]
  17. LYRICA [Concomitant]
  18. OMEPRAZOLE [Concomitant]

REACTIONS (9)
  - JOINT INJURY [None]
  - EAR DISCOMFORT [None]
  - HEADACHE [None]
  - FALL [None]
  - LIMB INJURY [None]
  - HAEMATOMA [None]
  - HYPOTENSION [None]
  - CHEST PAIN [None]
  - WRONG TECHNIQUE IN DRUG USAGE PROCESS [None]
